FAERS Safety Report 11249106 (Version 3)
Quarter: 2015Q3

REPORT INFORMATION
  Report Type: Report from Study
  Country: NL (occurrence: NL)
  Receive Date: 20150708
  Receipt Date: 20150818
  Transmission Date: 20151125
  Serious: Yes (Hospitalization)
  Sender: FDA-Public Use
  Company Number: NL-ABBVIE-15P-114-1418936-00

PATIENT
  Age: 65 Year
  Sex: Male
  Weight: 78 kg

DRUGS (2)
  1. DUODOPA [Suspect]
     Active Substance: CARBIDOPA\LEVODOPA
     Indication: PARKINSON^S DISEASE
     Dosage: 20/5MG/ML, MD:7.0 CD: 6.3 ED:3.0 ND: 4.2
     Route: 050
     Dates: start: 20071218
  2. DUODOPA [Suspect]
     Active Substance: CARBIDOPA\LEVODOPA
     Dosage: MORNING DOSE WAS 1.6 ML FOR UNKNOWN REASON
     Route: 050

REACTIONS (6)
  - Speech disorder [Recovering/Resolving]
  - Muscle rigidity [Recovering/Resolving]
  - Fall [Not Recovered/Not Resolved]
  - Device issue [Unknown]
  - Rib fracture [Not Recovered/Not Resolved]
  - Incorrect dose administered [Unknown]

NARRATIVE: CASE EVENT DATE: 201506
